FAERS Safety Report 8554439-3 (Version None)
Quarter: 2012Q3

REPORT INFORMATION
  Report Type: 
  Country: None (occurrence: None)
  Receive Date: 20120726
  Receipt Date: 20120726
  Transmission Date: 20120928
  Serious: Yes (Hospitalization)
  Sender: FDA-Public Use
  Company Number: None

PATIENT
  Sex: Female
  Weight: 91 kg

DRUGS (1)
  1. TICAGRELOR 90MG [Suspect]
     Indication: STENT PLACEMENT
     Dosage: 180MG X 1, THEN 90MG BID PO
     Route: 048
     Dates: start: 20120717, end: 20120719

REACTIONS (4)
  - PALLOR [None]
  - HAEMOGLOBIN DECREASED [None]
  - GASTRITIS EROSIVE [None]
  - RECTAL HAEMORRHAGE [None]
